FAERS Safety Report 12960418 (Version 2)
Quarter: 2016Q4

REPORT INFORMATION
  Report Type: Spontaneous
  Country: US (occurrence: US)
  Receive Date: 20161121
  Receipt Date: 20161206
  Transmission Date: 20170207
  Serious: No
  Sender: FDA-Public Use
  Company Number: US-MALLINCKRODT-T201600504

PATIENT
  Age: 49 Year
  Sex: Female
  Weight: 40 kg

DRUGS (4)
  1. DIAZEPAM. [Concomitant]
     Active Substance: DIAZEPAM
  2. MORPHINE [Concomitant]
     Active Substance: MORPHINE
     Dosage: ER AND IR UNK
  3. FENTANYL CITRATE. [Suspect]
     Active Substance: FENTANYL CITRATE
     Indication: PARAPLEGIA
     Dosage: 800 MCG, 1 LOZENGE QID
     Route: 048
     Dates: start: 20160206
  4. FENTANYL CITRATE. [Suspect]
     Active Substance: FENTANYL CITRATE
     Dosage: UNK FOR ABOUT 12 YEARS UNTIL ABOUT 1 YEAR AGO
     Route: 065
     Dates: start: 2004, end: 2015

REACTIONS (2)
  - Dental caries [Not Recovered/Not Resolved]
  - Off label use [Not Recovered/Not Resolved]

NARRATIVE: CASE EVENT DATE: 2006
